FAERS Safety Report 5956885-0 (Version None)
Quarter: 2008Q4

REPORT INFORMATION
  Report Type: 
  Country: None (occurrence: None)
  Receive Date: 20081118
  Receipt Date: 20081110
  Transmission Date: 20090506
  Serious: Yes (Life-Threatening, Hospitalization, Other)
  Sender: FDA-Public Use
  Company Number: NL-PFIZER INC-2008084341

PATIENT
  Sex: Female

DRUGS (2)
  1. CHAMPIX [Suspect]
     Indication: SMOKING CESSATION THERAPY
     Route: 048
     Dates: start: 20070405, end: 20071101
  2. LEXAPRO [Concomitant]
     Dates: start: 20061113, end: 20080212

REACTIONS (6)
  - ABDOMINAL PAIN UPPER [None]
  - COMA [None]
  - DEPRESSION [None]
  - PANCREATITIS [None]
  - POLYDIPSIA [None]
  - TYPE 1 DIABETES MELLITUS [None]
